FAERS Safety Report 5069681-6 (Version None)
Quarter: 2006Q3

REPORT INFORMATION
  Report Type: 
  Country: None (occurrence: None)
  Receive Date: 20060802
  Receipt Date: 20060802
  Transmission Date: 20061208
  Serious: Yes (Hospitalization)
  Sender: FDA-Public Use
  Company Number: None

PATIENT
  Age: 20 Year

DRUGS (3)
  1. KETEK [Suspect]
     Indication: UPPER RESPIRATORY TRACT INFECTION
     Dosage: 400MG  DAILY  PO
     Route: 048
     Dates: start: 20051209, end: 20051213
  2. LORATADINE [Concomitant]
  3. ORAL CONTRACEPTIVES [Concomitant]

REACTIONS (4)
  - DYSPHAGIA [None]
  - PHARYNGITIS [None]
  - SWELLING [None]
  - THROAT TIGHTNESS [None]
